FAERS Safety Report 15922185 (Version 1)
Quarter: 2019Q1

REPORT INFORMATION
  Report Type: Spontaneous
  Country: US (occurrence: US)
  Receive Date: 20190205
  Receipt Date: 20190205
  Transmission Date: 20190417
  Serious: No
  Sender: FDA-Public Use
  Company Number: None

PATIENT
  Age: 69 Year
  Sex: Female
  Weight: 68.1 kg

DRUGS (1)
  1. GAMUNEX [Suspect]
     Active Substance: HUMAN IMMUNOGLOBULIN G
     Indication: IMMUNODEFICIENCY COMMON VARIABLE
     Dosage: ?          OTHER FREQUENCY:MONTHLY;?
     Route: 042
     Dates: start: 20190204, end: 20190204

REACTIONS (2)
  - Pruritus [None]
  - Infusion related reaction [None]

NARRATIVE: CASE EVENT DATE: 20190204
